FAERS Safety Report 20237655 (Version 1)
Quarter: 2021Q4

REPORT INFORMATION
  Report Type: Spontaneous
  Country: IT (occurrence: IT)
  Receive Date: 20211228
  Receipt Date: 20211228
  Transmission Date: 20220303
  Serious: Yes (Death, Other)
  Sender: FDA-Public Use
  Company Number: IT-OTSUKA-2021_045551

PATIENT
  Age: 16 Year

DRUGS (12)
  1. BUSULFAN [Suspect]
     Active Substance: BUSULFAN
     Indication: Immunodeficiency
     Dosage: UNK
     Route: 065
  2. BUSULFAN [Suspect]
     Active Substance: BUSULFAN
     Indication: Bone marrow conditioning regimen
  3. BUSULFAN [Suspect]
     Active Substance: BUSULFAN
     Indication: Stem cell transplant
  4. FLUDARABINE [Suspect]
     Active Substance: FLUDARABINE PHOSPHATE
     Indication: Immunodeficiency
     Dosage: UNK
     Route: 065
  5. FLUDARABINE [Suspect]
     Active Substance: FLUDARABINE PHOSPHATE
     Indication: Bone marrow conditioning regimen
  6. FLUDARABINE [Suspect]
     Active Substance: FLUDARABINE PHOSPHATE
     Indication: Stem cell transplant
  7. THIOTEPA [Suspect]
     Active Substance: THIOTEPA
     Indication: Immunodeficiency
     Dosage: UNK
     Route: 065
  8. THIOTEPA [Suspect]
     Active Substance: THIOTEPA
     Indication: Bone marrow conditioning regimen
  9. THIOTEPA [Suspect]
     Active Substance: THIOTEPA
     Indication: Stem cell transplant
  10. ALEMTUZUMAB [Suspect]
     Active Substance: ALEMTUZUMAB
     Indication: Immunodeficiency
     Dosage: UNK
     Route: 065
  11. ALEMTUZUMAB [Suspect]
     Active Substance: ALEMTUZUMAB
     Indication: Bone marrow conditioning regimen
  12. ALEMTUZUMAB [Suspect]
     Active Substance: ALEMTUZUMAB
     Indication: Stem cell transplant

REACTIONS (4)
  - Death [Fatal]
  - Venoocclusive disease [Unknown]
  - Infection [Unknown]
  - Cytopenia [Unknown]
